FAERS Safety Report 6938598-1 (Version None)
Quarter: 2010Q3

REPORT INFORMATION
  Report Type: 
  Country: None (occurrence: None)
  Receive Date: 20100824
  Receipt Date: 20100804
  Transmission Date: 20110219
  Serious: Yes (Hospitalization, Other)
  Sender: FDA-Public Use
  Company Number: JP-SANOFI-AVENTIS-2010SA049858

PATIENT
  Age: 31 Year
  Sex: Male

DRUGS (17)
  1. FLUDARABINE PHOSPHATE [Suspect]
     Indication: STEM CELL TRANSPLANT
     Route: 048
     Dates: start: 20090901, end: 20090906
  2. ANTI-THYMOCYTE GLOBULIN NOS [Suspect]
     Indication: STEM CELL TRANSPLANT
     Route: 042
     Dates: start: 20090907, end: 20090907
  3. ANTI-THYMOCYTE GLOBULIN NOS [Suspect]
     Route: 042
     Dates: start: 20090907, end: 20090907
  4. ANTI-THYMOCYTE GLOBULIN NOS [Suspect]
     Route: 042
     Dates: start: 20090908, end: 20090908
  5. ANTI-THYMOCYTE GLOBULIN NOS [Suspect]
     Route: 042
     Dates: start: 20090909, end: 20090909
  6. CYTARABINE [Suspect]
     Indication: STEM CELL TRANSPLANT
     Route: 065
     Dates: start: 20090831, end: 20090903
  7. BUSULFAN [Suspect]
     Indication: STEM CELL TRANSPLANT
     Route: 065
     Dates: start: 20090902, end: 20090906
  8. BIAPENEM [Concomitant]
     Indication: INFECTION PROPHYLAXIS
     Dates: start: 20090905, end: 20090913
  9. MICAFUNGIN SODIUM [Concomitant]
     Indication: FUNGAL INFECTION
     Dates: start: 20090831, end: 20091019
  10. NEUPOGEN [Concomitant]
     Indication: INFECTION PROPHYLAXIS
     Dates: start: 20090914, end: 20090924
  11. NEUPOGEN [Concomitant]
     Dates: start: 20091227, end: 20100121
  12. PIPERACILLIN W/TAZOBACTAM [Concomitant]
     Indication: INFECTION PROPHYLAXIS
     Dates: start: 20090831, end: 20090921
  13. PREDNISOLONE [Concomitant]
     Indication: PROPHYLAXIS AGAINST GRAFT VERSUS HOST DISEASE
     Dates: start: 20091016
  14. MYCOPHENOLATE MOFETIL [Concomitant]
     Indication: PROPHYLAXIS AGAINST GRAFT VERSUS HOST DISEASE
     Dates: start: 20090910, end: 20091019
  15. TACROLIMUS [Concomitant]
     Indication: PROPHYLAXIS AGAINST GRAFT VERSUS HOST DISEASE
     Dates: start: 20090910
  16. ACYCLOVIR SODIUM [Concomitant]
     Indication: ANTIVIRAL PROPHYLAXIS
     Dates: start: 20090919, end: 20091001
  17. METHYLPREDNISOLONE SODIUM SUCCINATE [Concomitant]
     Dates: start: 20090907, end: 20091015

REACTIONS (2)
  - ACUTE GRAFT VERSUS HOST DISEASE IN SKIN [None]
  - HERPES ZOSTER [None]
